FAERS Safety Report 12278545 (Version 1)
Quarter: 2016Q2

REPORT INFORMATION
  Report Type: Spontaneous
  Country: US (occurrence: US)
  Receive Date: 20160418
  Receipt Date: 20160418
  Transmission Date: 20160815
  Serious: Yes (Hospitalization, Other)
  Sender: FDA-Public Use
  Company Number: ADR-2015-01297

PATIENT
  Age: 60 Year
  Sex: Female

DRUGS (2)
  1. BACLOFEN. [Suspect]
     Active Substance: BACLOFEN
     Route: 037
  2. DILAUDID [Suspect]
     Active Substance: HYDROMORPHONE HYDROCHLORIDE
     Dosage: 4 MG/DAY
     Route: 037

REACTIONS (11)
  - Hyperhidrosis [Unknown]
  - Anxiety [Unknown]
  - Pain [Unknown]
  - Vomiting [Unknown]
  - Hypertension [Unknown]
  - Flushing [Unknown]
  - Heart rate increased [Unknown]
  - Malaise [Unknown]
  - Drug withdrawal syndrome [Unknown]
  - Nausea [Unknown]
  - Feeling abnormal [Unknown]

NARRATIVE: CASE EVENT DATE: 201502
